FAERS Safety Report 11309636 (Version 2)
Quarter: 2015Q4

REPORT INFORMATION
  Report Type: Spontaneous
  Country: US (occurrence: US)
  Receive Date: 20150724
  Receipt Date: 20151120
  Transmission Date: 20160304
  Serious: No
  Sender: FDA-Public Use
  Company Number: US-TEVA-576569USA

PATIENT
  Sex: Female

DRUGS (1)
  1. COPAXONE [Suspect]
     Active Substance: GLATIRAMER ACETATE
     Indication: MULTIPLE SCLEROSIS
     Route: 065
     Dates: start: 2002, end: 20150301

REACTIONS (4)
  - Lipoatrophy [Not Recovered/Not Resolved]
  - Lymphoedema [Unknown]
  - Drug administration error [Unknown]
  - Lipoma [Unknown]
